FAERS Safety Report 4824029-4 (Version None)
Quarter: 2005Q4

REPORT INFORMATION
  Report Type: 
  Country: None (occurrence: None)
  Receive Date: 20051108
  Receipt Date: 20051020
  Transmission Date: 20060501
  Serious: Yes (Hospitalization)
  Sender: FDA-Public Use
  Company Number: 2005-128008-NL

PATIENT
  Age: 67 Year
  Sex: Female
  Weight: 60 kg

DRUGS (8)
  1. TICE BCG [Suspect]
     Dosage: CFU INTRAVESICAL, 6 INSTILLATIONS
     Route: 043
     Dates: start: 20030408, end: 20030212
  2. TICE BCG [Suspect]
     Indication: BLADDER CANCER
     Dosage: CFU INTRAVESICAL
     Route: 043
     Dates: start: 20050504, end: 20050810
  3. COMBIVENT [Concomitant]
  4. TENORMIN [Concomitant]
  5. NORVASC [Concomitant]
  6. HYDROCHLOROTHIAZIDE [Concomitant]
  7. POTASSIUM [Concomitant]
  8. ASPIRIN [Concomitant]

REACTIONS (3)
  - BLADDER CANCER RECURRENT [None]
  - LUNG DISORDER [None]
  - POSITRON EMISSION TOMOGRAM ABNORMAL [None]
